FAERS Safety Report 18750944 (Version 2)
Quarter: 2021Q1

REPORT INFORMATION
  Report Type: Report from Study
  Country: US (occurrence: US)
  Receive Date: 20210118
  Receipt Date: 20210308
  Transmission Date: 20210419
  Serious: No
  Sender: FDA-Public Use
  Company Number: NVSC2021US010054

PATIENT
  Sex: Female

DRUGS (1)
  1. KISQALI [Suspect]
     Active Substance: RIBOCICLIB
     Indication: PRODUCT USED FOR UNKNOWN INDICATION
     Dosage: UNK
     Route: 048

REACTIONS (7)
  - Influenza like illness [Unknown]
  - Nausea [Unknown]
  - Abdominal discomfort [Unknown]
  - Pain [Unknown]
  - Illness [Unknown]
  - Decreased appetite [Unknown]
  - Fatigue [Unknown]
